FAERS Safety Report 4505201-X (Version None)
Quarter: 2004Q4

REPORT INFORMATION
  Report Type: 
  Country: None (occurrence: None)
  Receive Date: 20041015
  Receipt Date: 20040709
  Transmission Date: 20050328
  Serious: Yes (Other)
  Sender: FDA-Public Use
  Company Number: 2004046515

PATIENT
  Age: 64 Year
  Sex: Female
  Weight: 97.5234 kg

DRUGS (5)
  1. NEURONTIN [Suspect]
     Indication: SLEEP DISORDER
     Dosage: 300 MG (300 MG, QD INTERVAL: EVERY DAY), ORAL
     Route: 048
     Dates: start: 20040601, end: 20040705
  2. AMLODIPINE BESLATE (AMLODIPINE BESILATE) [Concomitant]
  3. HYDROCHLOROTHIAZIDE [Concomitant]
  4. ATENOLOL [Concomitant]
  5. TRAZODONE HCL [Concomitant]

REACTIONS (2)
  - NAUSEA [None]
  - SUICIDAL IDEATION [None]
